FAERS Safety Report 11999072 (Version 1)
Quarter: 2016Q1

REPORT INFORMATION
  Report Type: Spontaneous
  Country: US (occurrence: None)
  Receive Date: 20160203
  Receipt Date: 20160203
  Transmission Date: 20160526
  Serious: Yes (Disabling)
  Sender: FDA-Public Use
  Company Number: None

PATIENT
  Age: 73 Year
  Sex: Female
  Weight: 52.16 kg

DRUGS (9)
  1. OMEGA [Concomitant]
     Active Substance: CONVALLARIA MAJALIS\CRATAEGUS LAEVIGATA LEAF\PROXYPHYLLINE
  2. LEVOTHYROXIN [Concomitant]
     Active Substance: LEVOTHYROXINE
  3. BERBERINE GLUCODEFENSE [Concomitant]
  4. PROBIOTIC [Concomitant]
     Active Substance: PROBIOTICS NOS
  5. CALCIUM [Concomitant]
     Active Substance: CALCIUM
  6. BOTOX [Suspect]
     Active Substance: ONABOTULINUMTOXINA
  7. MULTI VITAMIN [Concomitant]
     Active Substance: VITAMINS
  8. MAGNESIUM MALATE [Concomitant]
  9. VISION ESSENTIALS [Concomitant]

REACTIONS (11)
  - Lymphadenopathy [None]
  - Mastication disorder [None]
  - Hypoaesthesia [None]
  - Dizziness [None]
  - Facial paralysis [None]
  - Foreign body [None]
  - Product difficult to swallow [None]
  - Facial pain [None]
  - Feeling abnormal [None]
  - Drug ineffective [None]
  - Muscle strain [None]

NARRATIVE: CASE EVENT DATE: 20151223
